FAERS Safety Report 4380372-7 (Version None)
Quarter: 2004Q2

REPORT INFORMATION
  Report Type: 
  Country: None (occurrence: None)
  Receive Date: 20040614
  Receipt Date: 20040505
  Transmission Date: 20050107
  Serious: Yes (Hospitalization)
  Sender: FDA-Public Use
  Company Number: 2004030086

PATIENT
  Age: 36 Year
  Sex: Female

DRUGS (13)
  1. HYDROXYZINE HCL [Suspect]
     Indication: ILL-DEFINED DISORDER
     Dosage: 12.5 MG (4 WK)
  2. ALPRAZOLAM [Suspect]
     Indication: ILL-DEFINED DISORDER
  3. AMPICLLIN/SULBACTAM (AMPICILLIN, SULBACTAM) [Suspect]
     Indication: THROMBOPHLEBITIS
  4. MIRTAZAPINE [Suspect]
     Indication: AGITATION
  5. RISPERDAL [Suspect]
     Indication: ILL-DEFINED DISORDER
  6. FLUVOXAMINE (FLUVOXAMINE) [Suspect]
     Indication: ILL-DEFINED DISORDER
  7. QUETIAPINE (QETIAPINE) [Concomitant]
  8. DIAZEPAM [Concomitant]
  9. THIORIDAZINE HCL [Concomitant]
  10. CARBAMAZEPINE [Concomitant]
  11. BIPERIEN (BIPERIEN) [Concomitant]
  12. TROXERUTIN (TROXERUTIN) [Concomitant]
  13. ENOXAPARIN SODIUM [Concomitant]

REACTIONS (5)
  - CONDITION AGGRAVATED [None]
  - DRUG EXPOSURE DURING PREGNANCY [None]
  - PREGNANCY [None]
  - PSYCHOTIC DISORDER [None]
  - THROMBOPHLEBITIS [None]
